FAERS Safety Report 5839605-X (Version None)
Quarter: 2008Q3

REPORT INFORMATION
  Report Type: 
  Country: None (occurrence: None)
  Receive Date: 20080807
  Receipt Date: 20080730
  Transmission Date: 20090109
  Serious: Yes (Hospitalization)
  Sender: FDA-Public Use
  Company Number: WAES 0806CAN00001

PATIENT
  Sex: Female

DRUGS (2)
  1. JANUVIA [Suspect]
     Indication: TYPE 2 DIABETES MELLITUS
     Dosage: 100 MG/AM PO
     Route: 048
     Dates: start: 20080404
  2. METFORMIN [Concomitant]

REACTIONS (9)
  - ANGINA PECTORIS [None]
  - BLOOD GLUCOSE INCREASED [None]
  - DISTURBANCE IN ATTENTION [None]
  - GASTROENTERITIS [None]
  - HUNGER [None]
  - HYPERHIDROSIS [None]
  - INCREASED APPETITE [None]
  - PALPITATIONS [None]
  - TREMOR [None]
